FAERS Safety Report 10151477 (Version 2)
Quarter: 2014Q2

REPORT INFORMATION
  Report Type: Report from Study
  Country: US (occurrence: US)
  Receive Date: 20140502
  Receipt Date: 20140502
  Transmission Date: 20141212
  Serious: Yes (Hospitalization, Other)
  Sender: FDA-Public Use
  Company Number: US-ABBVIE-10P-163-0651579-00

PATIENT
  Sex: Female
  Weight: 66.74 kg

DRUGS (8)
  1. HUMIRA 40 MG/0.8 ML PEN [Suspect]
     Indication: RHEUMATOID ARTHRITIS
     Dates: start: 2008, end: 2009
  2. UNNAMED ANESTHETIC [Suspect]
     Indication: KNEE OPERATION
     Dates: start: 20100304, end: 20100304
  3. METHOTREXATE [Concomitant]
     Indication: RHEUMATOID ARTHRITIS
     Dates: start: 201009
  4. ALENDRONATE [Concomitant]
     Indication: RHEUMATOID ARTHRITIS
     Dates: start: 201009
  5. LISINOPRIL [Concomitant]
     Indication: HYPERTENSION
  6. HYDROCHLOROTHIAZIDE [Concomitant]
     Indication: HYPERTENSION
  7. CELEBREX [Concomitant]
     Indication: RHEUMATOID ARTHRITIS
  8. VITAMINS [Concomitant]
     Indication: VITAMIN SUPPLEMENTATION

REACTIONS (8)
  - Chondropathy [Recovered/Resolved]
  - Rheumatoid arthritis [Recovered/Resolved]
  - Chondropathy [Recovered/Resolved]
  - Rheumatoid arthritis [Recovered/Resolved]
  - Arthralgia [Not Recovered/Not Resolved]
  - Convulsion [Recovered/Resolved]
  - Convulsion [Recovered/Resolved]
  - Amnesia [Recovered/Resolved]
